FAERS Safety Report 21457744 (Version 5)
Quarter: 2023Q1

REPORT INFORMATION
  Report Type: Report from Study
  Country: TW (occurrence: TW)
  Receive Date: 20221014
  Receipt Date: 20230118
  Transmission Date: 20230418
  Serious: Yes (Other)
  Sender: FDA-Public Use
  Company Number: TW-NOVARTISPH-NVSC2022TW175446

PATIENT
  Age: 31 Year
  Sex: Female

DRUGS (9)
  1. MYFORTIC [Suspect]
     Active Substance: MYCOPHENOLATE SODIUM
     Indication: Lupus nephritis
     Dosage: 360 MG
     Route: 048
     Dates: start: 20220518, end: 20220810
  2. FAMOTIDINE [Concomitant]
     Active Substance: FAMOTIDINE
     Indication: Gastrooesophageal reflux disease
     Dosage: UNK
     Route: 065
     Dates: start: 20220127
  3. HI-BESTON [Concomitant]
     Indication: Hypovitaminosis
     Dosage: 1 DOSAGE FORM (50 MG/TAB (BESTON 50 MG+B2 5 MG+B6 5 MG+B12 5 MCG)
     Route: 048
     Dates: start: 20220523
  4. NYSTATIN [Concomitant]
     Active Substance: NYSTATIN
     Indication: Oral candidiasis
     Dosage: 1 DOSAGE FORM (100000 U/ML) (SUSPENSION)
     Route: 048
     Dates: start: 20220323
  5. METHYLPREDNISOLONE [Concomitant]
     Active Substance: METHYLPREDNISOLONE
     Indication: Systemic lupus erythematosus
     Dosage: 1 DOSAGE FORM (4 MG)
     Route: 048
     Dates: start: 20220107
  6. HYDROXYCHLOROQUINE SULFATE [Concomitant]
     Active Substance: HYDROXYCHLOROQUINE SULFATE
     Indication: Systemic lupus erythematosus
     Dosage: UNK
     Route: 048
     Dates: start: 20220107
  7. TRIAMCINOLONE [Concomitant]
     Active Substance: TRIAMCINOLONE
     Indication: Glossitis
     Dosage: UNK (IN ORABASE)
     Route: 048
     Dates: start: 20220323
  8. ZINC GLUCONATE [Concomitant]
     Active Substance: ZINC GLUCONATE
     Indication: General physical health deterioration
     Dosage: UNK
     Route: 048
     Dates: start: 20220207
  9. OXETHAZAINE [Concomitant]
     Active Substance: OXETHAZAINE
     Indication: Gastrooesophageal reflux disease
     Dosage: UNK
     Route: 048
     Dates: start: 20220719, end: 20220722

REACTIONS (3)
  - Leukopenia [Not Recovered/Not Resolved]
  - Vulvovaginitis [Recovered/Resolved]
  - COVID-19 [Recovered/Resolved]

NARRATIVE: CASE EVENT DATE: 20220531
